FAERS Safety Report 9684693 (Version 2)
Quarter: 2013Q4

REPORT INFORMATION
  Report Type: Report from Study
  Country: US (occurrence: US)
  Receive Date: 20131112
  Receipt Date: 20131112
  Transmission Date: 20140711
  Serious: Yes (Hospitalization, Other)
  Sender: FDA-Public Use
  Company Number: US-ABBVIE-13P-163-1162197-00

PATIENT
  Age: 55 Year
  Sex: Male
  Weight: 99.43 kg

DRUGS (14)
  1. HUMIRA [Suspect]
     Indication: PSORIASIS
     Dates: start: 20130701, end: 20130701
  2. HUMIRA [Suspect]
     Dates: start: 201307
  3. UNKNOWN ANTIBIOTICS [Suspect]
     Indication: INFECTION
     Dates: start: 201309, end: 201309
  4. METFORMIN [Concomitant]
     Indication: DIABETES MELLITUS
  5. GLIPIZIDE [Concomitant]
     Indication: DIABETES MELLITUS
  6. LOPID [Concomitant]
     Indication: BLOOD CHOLESTEROL INCREASED
  7. LEVOTHYROXINE [Concomitant]
     Indication: BASEDOW^S DISEASE
  8. LEVOTHYROXINE [Concomitant]
     Indication: RADIOACTIVE IODINE THERAPY
  9. ZYRTEC [Concomitant]
     Indication: HYPERSENSITIVITY
  10. EPIVIR-HBV [Concomitant]
     Indication: HEPATITIS B
     Dates: start: 201306
  11. PRAVASTATIN [Concomitant]
     Indication: BLOOD CHOLESTEROL INCREASED
  12. VITAMIN E [Concomitant]
     Indication: VITAMIN SUPPLEMENTATION
  13. FISH OIL [Concomitant]
     Indication: HEPATIC STEATOSIS
  14. VITAMIN D [Concomitant]
     Indication: VITAMIN SUPPLEMENTATION

REACTIONS (5)
  - Device dislocation [Not Recovered/Not Resolved]
  - Fungal infection [Recovered/Resolved]
  - Nephrolithiasis [Unknown]
  - Infection [Recovered/Resolved]
  - Psoriasis [Unknown]
